FAERS Safety Report 11261096 (Version 3)
Quarter: 2015Q3

REPORT INFORMATION
  Report Type: Spontaneous
  Country: IT (occurrence: IT)
  Receive Date: 20150710
  Receipt Date: 20150723
  Transmission Date: 20151125
  Serious: Yes (Other)
  Sender: FDA-Public Use
  Company Number: IT-BAYER-2015-375497

PATIENT
  Age: 60 Year
  Sex: Male

DRUGS (7)
  1. ACETYLSALICYLIC ACID({=100 MG) [Suspect]
     Active Substance: ASPIRIN
     Indication: ACUTE CORONARY SYNDROME
     Dosage: 100 MG, UNK
     Route: 048
     Dates: start: 20150706, end: 20150706
  2. TORVAST [Concomitant]
     Active Substance: ATORVASTATIN
     Dosage: 80 MG, UNK
  3. TRIATEC [Concomitant]
     Active Substance: RAMIPRIL
     Dosage: 5 MG, UNK
     Route: 048
  4. ANTRA [Concomitant]
     Active Substance: OMEPRAZOLE
     Dosage: 20 MG, UNK
     Route: 048
  5. DILATREND [Concomitant]
     Active Substance: CARVEDILOL
     Dosage: 12.5 MG, UNK
     Route: 048
  6. BRILIQUE [Suspect]
     Active Substance: TICAGRELOR
     Indication: ACUTE CORONARY SYNDROME
     Dosage: 180 MG, UNK
     Route: 048
  7. SELOKEN [Concomitant]
     Active Substance: METOPROLOL
     Dosage: UNK
     Route: 042

REACTIONS (2)
  - Gastric haemorrhage [None]
  - Haemorrhagic anaemia [None]

NARRATIVE: CASE EVENT DATE: 20150706
